FAERS Safety Report 19232999 (Version 3)
Quarter: 2021Q2

REPORT INFORMATION
  Report Type: Spontaneous
  Country: AU (occurrence: AU)
  Receive Date: 20210507
  Receipt Date: 20210616
  Transmission Date: 20210717
  Serious: No
  Sender: FDA-Public Use
  Company Number: AU-JNJFOC-20210456050

PATIENT

DRUGS (3)
  1. DUROGESIC [Suspect]
     Active Substance: FENTANYL
  2. DUROGESIC [Suspect]
     Active Substance: FENTANYL
     Indication: PRODUCT USED FOR UNKNOWN INDICATION
     Dosage: STRENGTH: 50.00 MCG/HR
     Route: 062
  3. DUROGESIC [Suspect]
     Active Substance: FENTANYL

REACTIONS (2)
  - Underdose [Unknown]
  - Product adhesion issue [Unknown]
